FAERS Safety Report 5430603-7 (Version None)
Quarter: 2007Q3

REPORT INFORMATION
  Report Type: 
  Country: None (occurrence: None)
  Receive Date: 20070828
  Receipt Date: 20070810
  Transmission Date: 20080115
  Serious: Yes (Other)
  Sender: FDA-Public Use
  Company Number: ENC200700141

PATIENT
  Age: 75 Year
  Sex: Female

DRUGS (1)
  1. ARGATROBAN [Suspect]
     Indication: HEPARIN-INDUCED THROMBOCYTOPENIA
     Dosage: INTRAVENOUS
     Route: 042

REACTIONS (4)
  - ANAEMIA [None]
  - CARDIAC FAILURE [None]
  - EPISTAXIS [None]
  - OPERATIVE HAEMORRHAGE [None]
